FAERS Safety Report 15894901 (Version 1)
Quarter: 2019Q1

REPORT INFORMATION
  Report Type: Spontaneous
  Country: CN (occurrence: CN)
  Receive Date: 20190131
  Receipt Date: 20190131
  Transmission Date: 20190417
  Serious: Yes (Other)
  Sender: FDA-Public Use
  Company Number: CN-ROCHE-2251625

PATIENT
  Age: 10 Year

DRUGS (8)
  1. MYCOPHENOLATE MOFETIL. [Suspect]
     Active Substance: MYCOPHENOLATE MOFETIL
     Indication: RENAL TRANSPLANT
     Route: 065
  2. PREDNISONE. [Suspect]
     Active Substance: PREDNISONE
     Indication: RENAL TRANSPLANT
     Dosage: 4 MG/D
     Route: 048
  3. CSA [Suspect]
     Active Substance: CYCLOSPORINE
     Indication: RENAL TRANSPLANT
     Dosage: 6MG/KG.D
     Route: 065
  4. SOLU-MEDROL [Concomitant]
     Active Substance: METHYLPREDNISOLONE SODIUM SUCCINATE
     Route: 041
  5. TAC [Suspect]
     Active Substance: TRIAMCINOLONE ACETONIDE
     Indication: RENAL TRANSPLANT
     Dosage: 0.10 MG/KG.D
     Route: 065
  6. ATG-FRESENIUS [Concomitant]
     Active Substance: LAPINE T-LYMPHOCYTE IMMUNE GLOBULIN
  7. THYMOGLOBULINE [Concomitant]
     Active Substance: LAPINE T-LYMPHOCYTE IMMUNE GLOBULIN
  8. BASILIXIMAB [Concomitant]
     Active Substance: BASILIXIMAB

REACTIONS (5)
  - Renal embolism [Unknown]
  - Renal impairment [Unknown]
  - Renal failure [Unknown]
  - Infection [Unknown]
  - Transplant rejection [Unknown]
